FAERS Safety Report 15793542 (Version 1)
Quarter: 2019Q1

REPORT INFORMATION
  Report Type: Spontaneous
  Country: US (occurrence: US)
  Receive Date: 20190107
  Receipt Date: 20190107
  Transmission Date: 20190417
  Serious: No
  Sender: FDA-Public Use
  Company Number: US-PFIZER INC-2018536815

PATIENT
  Age: 54 Year
  Sex: Female
  Weight: 49 kg

DRUGS (8)
  1. PROVIGIL [MODAFINIL] [Concomitant]
     Indication: FATIGUE
     Dosage: UNK, 1X/DAY (ONCE IN THE MORNING)
  2. PROAIR [SALBUTAMOL SULFATE] [Concomitant]
     Dosage: UNK
  3. ESTROGEN [Concomitant]
     Active Substance: ESTROGENS
     Dosage: UNK
  4. PROGESTERONE. [Concomitant]
     Active Substance: PROGESTERONE
     Dosage: UNK, 1X/DAY (AT NIGHT)
  5. PRILOSEC [Concomitant]
     Active Substance: OMEPRAZOLE MAGNESIUM
     Indication: ABDOMINAL DISCOMFORT
     Dosage: UNK, AS NEEDED
  6. PRENATAL MULTIVITAMIN + DHA [Concomitant]
     Dosage: UNK
  7. CHANTIX [Suspect]
     Active Substance: VARENICLINE TARTRATE
     Indication: SMOKING CESSATION THERAPY
     Dosage: UNK, 2X/DAY
     Dates: start: 201811
  8. ANORO ELLIPTA [Concomitant]
     Active Substance: UMECLIDINIUM BROMIDE\VILANTEROL TRIFENATATE
     Dosage: UNK

REACTIONS (2)
  - Fatigue [Unknown]
  - Intentional product use issue [Unknown]
